FAERS Safety Report 11362650 (Version 1)
Quarter: 2015Q3

REPORT INFORMATION
  Report Type: Spontaneous
  Country: US (occurrence: US)
  Receive Date: 20150810
  Receipt Date: 20150810
  Transmission Date: 20151125
  Serious: Yes (Other)
  Sender: FDA-Public Use
  Company Number: US-TEVA-584305USA

PATIENT
  Sex: Female

DRUGS (2)
  1. COPAXONE [Suspect]
     Active Substance: GLATIRAMER ACETATE
     Indication: MULTIPLE SCLEROSIS
     Dosage: UNKNOWN FORM STRENGTH
  2. AVONEX [Concomitant]
     Active Substance: INTERFERON BETA-1A
     Route: 065

REACTIONS (7)
  - Drug hypersensitivity [Unknown]
  - General physical health deterioration [Unknown]
  - Blood pressure increased [Unknown]
  - Urticaria [Unknown]
  - Dyspnoea [Unknown]
  - Injection site pain [Unknown]
  - Body temperature increased [Unknown]
